FAERS Safety Report 5692772-3 (Version None)
Quarter: 2008Q2

REPORT INFORMATION
  Report Type: 
  Country: None (occurrence: None)
  Receive Date: 20080401
  Receipt Date: 20080319
  Transmission Date: 20081010
  Serious: Yes (Death, Hospitalization)
  Sender: FDA-Public Use
  Company Number: US023105

PATIENT
  Age: 57 Year
  Sex: Male
  Weight: 69 kg

DRUGS (5)
  1. ARSENIC TRIOXIDE [Suspect]
     Indication: ACUTE MYELOID LEUKAEMIA
     Dosage: 11 MG DAYS 1-5 OF 12 DAY CYCLE QD INTRAVENOUS
     Route: 042
  2. IDARUBICINE [Concomitant]
  3. ARACYTINE [Concomitant]
  4. PLITICAN [Concomitant]
  5. NEXIUM [Concomitant]

REACTIONS (21)
  - APALLIC SYNDROME [None]
  - APLASIA [None]
  - BLOOD PH INCREASED [None]
  - BLOOD PRESSURE SYSTOLIC INCREASED [None]
  - BRAIN HERNIATION [None]
  - CEREBRAL HAEMORRHAGE [None]
  - CHOLESTASIS [None]
  - COMA [None]
  - ERYTHEMA [None]
  - ESCHERICHIA INFECTION [None]
  - EXTRADURAL HAEMATOMA [None]
  - HAEMOGLOBIN DECREASED [None]
  - HYPERTHERMIA [None]
  - LOSS OF CONSCIOUSNESS [None]
  - MYDRIASIS [None]
  - NAUSEA [None]
  - PRURITUS [None]
  - PUPILS UNEQUAL [None]
  - THROMBOCYTOPENIA [None]
  - VOMITING [None]
  - WHITE BLOOD CELL COUNT DECREASED [None]
